FAERS Safety Report 6253125-2 (Version None)
Quarter: 2009Q2

REPORT INFORMATION
  Report Type: 
  Country: None (occurrence: None)
  Receive Date: 20090629
  Receipt Date: 20090629
  Transmission Date: 20091009
  Serious: No
  Sender: FDA-Public Use
  Company Number: None

PATIENT
  Sex: Male
  Weight: 120.6568 kg

DRUGS (1)
  1. LITHIUM CARBONATE [Suspect]
     Dosage: 1500 MG DAILY PO
     Route: 048

REACTIONS (2)
  - BLOOD CREATININE INCREASED [None]
  - URINE VISCOSITY DECREASED [None]
